FAERS Safety Report 15962526 (Version 3)
Quarter: 2020Q2

REPORT INFORMATION
  Report Type: Spontaneous
  Country: DE (occurrence: DE)
  Receive Date: 20190214
  Receipt Date: 20200518
  Transmission Date: 20200713
  Serious: Yes (Hospitalization)
  Sender: FDA-Public Use
  Company Number: PHHY2019DE032809

PATIENT
  Age: 77 Year
  Sex: Male
  Weight: 75 kg

DRUGS (36)
  1. CARBOPLATIN. [Suspect]
     Active Substance: CARBOPLATIN
     Dosage: 5 MG, 5MG*MIN/ML
     Route: 041
  2. DEXAMETHASONE. [Concomitant]
     Active Substance: DEXAMETHASONE
     Dosage: 8 MG
     Route: 048
     Dates: start: 20190111, end: 20190113
  3. VOLTAREN [Concomitant]
     Active Substance: DICLOFENAC SODIUM
     Indication: PAIN
     Dosage: 3 MG, QD
     Route: 048
     Dates: start: 20181120
  4. ZOFRAN [Concomitant]
     Active Substance: ONDANSETRON HYDROCHLORIDE
     Dosage: 4 MG
     Route: 048
     Dates: start: 201811
  5. ERYTHROCYTES [Concomitant]
     Active Substance: HUMAN RED BLOOD CELL
     Indication: ANAEMIA
     Dosage: 500 ML, QD
     Route: 041
     Dates: start: 20190201, end: 20190201
  6. NOVALGIN [Concomitant]
     Indication: PAIN
     Dosage: 3 G, QD
     Route: 048
     Dates: start: 2018, end: 20181121
  7. GRANISETRON [Concomitant]
     Active Substance: GRANISETRON
     Dosage: 1 MG
     Route: 041
     Dates: start: 20190110, end: 20190110
  8. FOSAPREPITANT [Concomitant]
     Active Substance: FOSAPREPITANT
     Dosage: 150 MG
     Route: 041
     Dates: start: 20181107, end: 20181107
  9. ATROVENT [Concomitant]
     Active Substance: IPRATROPIUM BROMIDE
     Dosage: 20 MG, QD
     Route: 055
  10. ABRAXANE [Suspect]
     Active Substance: PACLITAXEL
     Indication: NON-SMALL CELL LUNG CANCER
     Dosage: 100 MG/M2
     Route: 041
  11. DEXAMETHASONE. [Concomitant]
     Active Substance: DEXAMETHASONE
     Dosage: 8 MG
     Route: 041
     Dates: start: 20181221, end: 20181223
  12. VOMEC [Concomitant]
     Indication: PROPHYLAXIS
     Dosage: 50 MG, UNK
     Route: 048
  13. SULTANOL [Concomitant]
     Active Substance: ALBUTEROL SULFATE
     Dosage: 20 MG, QD
     Route: 055
  14. ABRAXANE [Suspect]
     Active Substance: PACLITAXEL
     Dosage: 80 MG/M2
     Route: 041
     Dates: start: 20181220, end: 20181227
  15. DEXAMETHASONE. [Concomitant]
     Active Substance: DEXAMETHASONE
     Indication: PROPHYLAXIS
     Dosage: 8 MG
     Route: 041
     Dates: start: 20181107, end: 20181107
  16. DEXAMETHASONE. [Concomitant]
     Active Substance: DEXAMETHASONE
     Dosage: 8 MG
     Route: 041
     Dates: start: 20190110, end: 20190110
  17. GRANISETRON [Concomitant]
     Active Substance: GRANISETRON
     Dosage: 1 MG
     Route: 065
     Dates: start: 20181227, end: 20181227
  18. VOMEX A [Concomitant]
     Active Substance: DIMENHYDRINATE
     Indication: PROPHYLAXIS
     Dosage: 50 MG
     Route: 048
     Dates: start: 201811
  19. GRANISETRON [Concomitant]
     Active Substance: GRANISETRON
     Indication: PROPHYLAXIS
     Dosage: 1 MG, UNK
     Route: 041
     Dates: start: 20181107, end: 20181107
  20. ATROVENT [Concomitant]
     Active Substance: IPRATROPIUM BROMIDE
     Indication: CHRONIC OBSTRUCTIVE PULMONARY DISEASE
     Dosage: 4 OT, QD
     Route: 055
  21. SULTANOL [Concomitant]
     Active Substance: ALBUTEROL SULFATE
     Indication: CHRONIC OBSTRUCTIVE PULMONARY DISEASE
     Dosage: 4 OT, QD
     Route: 055
  22. CARBOPLATIN. [Suspect]
     Active Substance: CARBOPLATIN
     Indication: NON-SMALL CELL LUNG CANCER
     Dosage: 5 MG, 5MG*MIN/ML
     Route: 041
     Dates: start: 20181107, end: 20190110
  23. ABRAXANE [Suspect]
     Active Substance: PACLITAXEL
     Dosage: 80 MG/M2
     Route: 041
     Dates: start: 20190110, end: 20190117
  24. ABRAXANE [Suspect]
     Active Substance: PACLITAXEL
     Dosage: 80 MG/M2
     Route: 041
     Dates: start: 201901, end: 20190125
  25. DEXAMETHASONE. [Concomitant]
     Active Substance: DEXAMETHASONE
     Dosage: 8 MG
     Route: 041
     Dates: start: 20181108, end: 20181110
  26. GRANISETRON [Concomitant]
     Active Substance: GRANISETRON
     Dosage: 1 MG
     Route: 041
     Dates: start: 20181220, end: 20181220
  27. FERROSANOL [Concomitant]
     Active Substance: FERROUS GLUCONATE
     Indication: HAEMOGLOBIN DECREASED
     Dosage: 100 MG, QD
     Route: 048
     Dates: start: 20190109
  28. ZOMETA [Concomitant]
     Active Substance: ZOLEDRONIC ACID
     Indication: PROPHYLAXIS
     Dosage: 4 MG, QMO
     Route: 041
     Dates: start: 20181108, end: 20190112
  29. ZOFRAN [Concomitant]
     Active Substance: ONDANSETRON HYDROCHLORIDE
     Indication: PROPHYLAXIS
     Dosage: 4 MG, UNK
     Route: 048
  30. FOSAPREPITANT [Concomitant]
     Active Substance: FOSAPREPITANT
     Dosage: 150 MG
     Route: 041
     Dates: start: 20190110, end: 20190110
  31. VOLTAREN [Concomitant]
     Active Substance: DICLOFENAC SODIUM
     Dosage: 3 GRAM
     Route: 048
     Dates: start: 20181120
  32. DEXAMETHASONE. [Concomitant]
     Active Substance: DEXAMETHASONE
     Dosage: 8 MG, UNK
     Route: 041
     Dates: start: 20181220, end: 20181220
  33. FOSAPREPITANT [Concomitant]
     Active Substance: FOSAPREPITANT
     Indication: PROPHYLAXIS
     Dosage: 150 MG, UNK
     Route: 041
     Dates: start: 20181220, end: 20181220
  34. SPIOLTO RESPIMAT [Concomitant]
     Active Substance: OLODATEROL HYDROCHLORIDE\TIOTROPIUM BROMIDE MONOHYDRATE
     Indication: DYSPNOEA
     Dosage: 50 MG, QD
     Route: 055
     Dates: start: 201811
  35. ZOMETA [Concomitant]
     Active Substance: ZOLEDRONIC ACID
     Dosage: 4 MG, QMO
     Route: 041
     Dates: start: 20190112, end: 20190112
  36. METAMIZOLE [Concomitant]
     Active Substance: METAMIZOLE
     Indication: PAIN
     Dosage: 3 G, QD
     Route: 048
     Dates: start: 2018, end: 20181121

REACTIONS (2)
  - White blood cell count decreased [Recovered/Resolved]
  - Dyspnoea [Recovering/Resolving]

NARRATIVE: CASE EVENT DATE: 20190109
